FAERS Safety Report 20659743 (Version 1)
Quarter: 2022Q1

REPORT INFORMATION
  Report Type: Spontaneous
  Country: GB (occurrence: GB)
  Receive Date: 20220331
  Receipt Date: 20220331
  Transmission Date: 20220424
  Serious: Yes (Life-Threatening, Hospitalization, Disabling)
  Sender: FDA-Public Use
  Company Number: GB-MHRA-MED-202203181214477180-KMK7H

PATIENT
  Age: 71 Year
  Sex: Male

DRUGS (13)
  1. VENLAFAXINE [Suspect]
     Active Substance: VENLAFAXINE HYDROCHLORIDE
     Indication: Depression
     Dosage: 225 MILLIGRAM DAILY;
     Dates: end: 20220228
  2. ASPIRIN [Concomitant]
     Active Substance: ASPIRIN
  3. GABAPENTIN [Concomitant]
     Active Substance: GABAPENTIN
  4. LANSOPRAZOLE [Concomitant]
     Active Substance: LANSOPRAZOLE
  5. LORAZEPAM [Concomitant]
     Active Substance: LORAZEPAM
  6. MIRABEGRON [Concomitant]
     Active Substance: MIRABEGRON
  7. RAMIPRIL [Concomitant]
     Active Substance: RAMIPRIL
  8. SIMVASTATIN [Concomitant]
     Active Substance: SIMVASTATIN
  9. SOLIFENACIN [Concomitant]
     Active Substance: SOLIFENACIN
  10. TAMSULOSIN [Concomitant]
     Active Substance: TAMSULOSIN
  11. TEMAZEPAM [Concomitant]
     Active Substance: TEMAZEPAM
  12. TRIFLUOPERAZINE [Concomitant]
     Active Substance: TRIFLUOPERAZINE HYDROCHLORIDE
  13. WARFARIN [Concomitant]
     Active Substance: WARFARIN
     Indication: Mitral valve replacement

REACTIONS (1)
  - Subdural haemorrhage [Recovered/Resolved]

NARRATIVE: CASE EVENT DATE: 20220217
